FAERS Safety Report 22595015 (Version 3)
Quarter: 2024Q4

REPORT INFORMATION
  Report Type: Spontaneous
  Country: US (occurrence: US)
  Receive Date: 20230613
  Receipt Date: 20241204
  Transmission Date: 20250114
  Serious: Yes (Other)
  Sender: KYOWA
  Company Number: US-KYOWAKIRIN-2023BKK008622

PATIENT

DRUGS (1)
  1. POTELIGEO [Suspect]
     Active Substance: MOGAMULIZUMAB-KPKC
     Indication: Cutaneous T-cell lymphoma
     Dosage: UNK (4 CYCLES)
     Route: 065

REACTIONS (4)
  - Bulbar palsy [Unknown]
  - Myositis [Unknown]
  - Eczema [Unknown]
  - Muscular weakness [Unknown]
